FAERS Safety Report 5288598-5 (Version None)
Quarter: 2007Q2

REPORT INFORMATION
  Report Type: 
  Country: None (occurrence: None)
  Receive Date: 20070405
  Receipt Date: 20070326
  Transmission Date: 20071010
  Serious: Yes (Hospitalization)
  Sender: FDA-Public Use
  Company Number: FR-ABBOTT-07P-056-0363091-00

PATIENT
  Age: 63 Year
  Sex: Female

DRUGS (2)
  1. TARKA [Suspect]
     Indication: ESSENTIAL HYPERTENSION
     Route: 048
     Dates: start: 20070117, end: 20070202
  2. FENOFIBRATE [Concomitant]
     Indication: HYPERLIPIDAEMIA
     Route: 048

REACTIONS (6)
  - BURNING SENSATION [None]
  - CONJUNCTIVITIS [None]
  - DERMATITIS EXFOLIATIVE [None]
  - DYSPNOEA [None]
  - PALATAL OEDEMA [None]
  - PHARYNGEAL ERYTHEMA [None]
